FAERS Safety Report 7197925-3 (Version None)
Quarter: 2010Q4

REPORT INFORMATION
  Report Type: 
  Country: None (occurrence: None)
  Receive Date: 20101227
  Receipt Date: 20101224
  Transmission Date: 20110411
  Serious: Yes (Disabling)
  Sender: FDA-Public Use
  Company Number: BE-ROCHE-739069

PATIENT
  Sex: Female
  Weight: 48 kg

DRUGS (1)
  1. XELODA [Suspect]
     Indication: BREAST CANCER
     Route: 048
     Dates: start: 20100701

REACTIONS (3)
  - ARTHRALGIA [None]
  - CARTILAGE ATROPHY [None]
  - OEDEMA PERIPHERAL [None]
